FAERS Safety Report 4293890-7 (Version None)
Quarter: 2004Q1

REPORT INFORMATION
  Report Type: 
  Country: None (occurrence: None)
  Receive Date: 20040211
  Receipt Date: 20040130
  Transmission Date: 20041129
  Serious: Yes (Other)
  Sender: FDA-Public Use
  Company Number: A-CH2003-03803

PATIENT
  Age: 33 Year
  Sex: Female

DRUGS (11)
  1. TRACLEER [Suspect]
     Indication: PULMONARY HYPERTENSION
     Dosage: 62.5 MG, BID, ORAL;  125 MG, BID, ORAL;  62.5 MG, BID, ORAL
     Route: 048
     Dates: start: 20030623, end: 20030727
  2. TRACLEER [Suspect]
     Indication: PULMONARY HYPERTENSION
     Dosage: 62.5 MG, BID, ORAL;  125 MG, BID, ORAL;  62.5 MG, BID, ORAL
     Route: 048
     Dates: start: 20030728, end: 20031028
  3. TRACLEER [Suspect]
     Indication: PULMONARY HYPERTENSION
     Dosage: 62.5 MG, BID, ORAL;  125 MG, BID, ORAL;  62.5 MG, BID, ORAL
     Route: 048
     Dates: start: 20031028
  4. PREVISCAN (FLUINDIONE) [Concomitant]
  5. LASIX [Concomitant]
  6. OXYGEN (OXYGEN) [Concomitant]
  7. POTASSIUM CHLORIDE [Concomitant]
  8. ORACILLINE (PHENOXYMETHYLPENICILLIN) [Concomitant]
  9. FOLIC ACID [Concomitant]
  10. AMITRIPTYLINE HYDROCHLORIDE [Concomitant]
  11. COD EFFERALGAN (CODEINE, PARACETAMOL) [Concomitant]

REACTIONS (8)
  - ALANINE AMINOTRANSFERASE INCREASED [None]
  - ASPARTATE AMINOTRANSFERASE INCREASED [None]
  - BLOOD ALKALINE PHOSPHATASE INCREASED [None]
  - BLOOD BILIRUBIN INCREASED [None]
  - CHEST PAIN [None]
  - GAMMA-GLUTAMYLTRANSFERASE INCREASED [None]
  - LIVER FUNCTION TEST ABNORMAL [None]
  - PAIN IN EXTREMITY [None]
